FAERS Safety Report 8410047-6 (Version None)
Quarter: 2012Q2

REPORT INFORMATION
  Report Type: 
  Country: None (occurrence: None)
  Receive Date: 20120605
  Receipt Date: 20120530
  Transmission Date: 20120825
  Serious: Yes (Hospitalization)
  Sender: FDA-Public Use
  Company Number: US-BAYER-2011-099831

PATIENT
  Age: 34 Year
  Sex: Female
  Weight: 81.633 kg

DRUGS (8)
  1. YAZ [Suspect]
     Indication: DYSMENORRHOEA
  2. FLEXERIL [Concomitant]
  3. LOVENOX [Concomitant]
     Indication: PULMONARY EMBOLISM
  4. LOESTRIN 1.5/30 [Concomitant]
     Indication: ORAL CONTRACEPTION
     Dosage: UNK
     Dates: start: 20090511, end: 20090527
  5. YAZ [Suspect]
     Indication: PELVIC PAIN
     Dosage: UNK
     Dates: start: 20090527, end: 20090805
  6. DARVOCET [Concomitant]
  7. VOLTAREN [Concomitant]
  8. TORADOL [Concomitant]

REACTIONS (8)
  - INJURY [None]
  - DYSPNOEA [None]
  - DISCOMFORT [None]
  - CHEST PAIN [None]
  - EMOTIONAL DISTRESS [None]
  - CARDIOMEGALY [None]
  - PULMONARY EMBOLISM [None]
  - ANXIETY [None]
